FAERS Safety Report 5660784-1 (Version None)
Quarter: 2008Q1

REPORT INFORMATION
  Report Type: 
  Country: None (occurrence: None)
  Receive Date: 20080311
  Receipt Date: 20080229
  Transmission Date: 20080703
  Serious: Yes (Hospitalization, Other)
  Sender: FDA-Public Use
  Company Number: US-MERCK-0706USA00918

PATIENT
  Age: 65 Year
  Sex: Female
  Weight: 75 kg

DRUGS (5)
  1. FOSAMAX [Suspect]
     Indication: OSTEOPENIA
     Route: 048
     Dates: start: 20050810, end: 20060702
  2. FOSAMAX [Suspect]
     Route: 048
  3. PREDNISONE [Suspect]
     Route: 065
     Dates: start: 20050301, end: 20051108
  4. FOLIC ACID [Concomitant]
     Route: 065
  5. CORTICOSTEROIDS (UNSPECIFIED) [Concomitant]
     Route: 065
     Dates: start: 20050324, end: 20051101

REACTIONS (19)
  - CARDIAC MURMUR [None]
  - DEHYDRATION [None]
  - EYE DISORDER [None]
  - FALL [None]
  - HYPOKALAEMIA [None]
  - HYPOMANIA [None]
  - INJURY [None]
  - LOOSE TOOTH [None]
  - MAJOR DEPRESSION [None]
  - MOUTH ULCERATION [None]
  - OVERDOSE [None]
  - PANCYTOPENIA [None]
  - PERIODONTITIS [None]
  - PSYCHOTIC DISORDER [None]
  - RENAL FAILURE [None]
  - RENAL HAEMORRHAGE [None]
  - RESORPTION BONE INCREASED [None]
  - SYSTEMIC LUPUS ERYTHEMATOSUS [None]
  - THROMBOCYTOPENIA [None]
